FAERS Safety Report 5860060-8 (Version None)
Quarter: 2008Q3

REPORT INFORMATION
  Report Type: 
  Country: None (occurrence: None)
  Receive Date: 20080827
  Receipt Date: 20080725
  Transmission Date: 20090109
  Serious: Yes (Death, Life-Threatening, Hospitalization)
  Sender: FDA-Public Use
  Company Number: US-ROCHE-496910

PATIENT
  Sex: Female
  Weight: 52.1 kg

DRUGS (22)
  1. CAPECITABINE [Suspect]
     Route: 065
     Dates: start: 20070219
  2. BLINDED BEVACIZUMAB [Suspect]
     Dosage: 915 MG, Q3W
     Route: 042
     Dates: start: 20070219
  3. BLINDED PLACEBO [Suspect]
     Route: 042
     Dates: start: 20070219
  4. EFFEXOR [Concomitant]
     Indication: DEPRESSION
     Dosage: 75 MG, QD
     Route: 048
     Dates: start: 20040420, end: 20070406
  5. EFFEXOR [Concomitant]
     Dosage: 75 MG, QD
     Route: 048
     Dates: start: 20040420, end: 20070406
  6. EFFEXOR [Concomitant]
  7. MILK OF MAGNESIA [Concomitant]
     Indication: CONSTIPATION
     Dosage: UNK, PRN
     Route: 048
     Dates: start: 20050527, end: 20070406
  8. MORPHINE SULFATE [Concomitant]
     Indication: BONE PAIN
     Dosage: 30 MG, BID
     Route: 048
     Dates: start: 20060303, end: 20070402
  9. MORPHINE SULFATE [Concomitant]
     Dosage: 30 MG, BID
     Route: 048
     Dates: start: 20060303, end: 20070402
  10. METOPROLOL TARTRATE [Concomitant]
     Indication: HYPERTENSION
     Dosage: 50 MG, UNK
     Route: 048
     Dates: start: 20060505, end: 20070406
  11. SENOKOT [Concomitant]
     Indication: CONSTIPATION
     Dosage: UNK, BID
     Route: 048
     Dates: start: 20060824, end: 20070406
  12. COMPAZINE [Concomitant]
     Indication: NAUSEA
     Dosage: 10 MG, UNK
     Route: 048
     Dates: start: 20070111, end: 20070406
  13. OXYGEN [Concomitant]
     Indication: HYPOXIA
     Dosage: 2 L, CONTINUOUS
     Dates: start: 20070320, end: 20070406
  14. REGLAN [Concomitant]
     Indication: NAUSEA
     Dates: start: 20070327, end: 20070406
  15. MEGACE [Concomitant]
     Indication: ANOREXIA
     Dosage: 20 ML, QD
     Route: 048
     Dates: start: 20070327, end: 20070406
  16. MEGACE [Concomitant]
     Dosage: 20 ML, QD
     Route: 048
     Dates: start: 20070327, end: 20070406
  17. MS CONTIN [Concomitant]
     Indication: BONE PAIN
     Dosage: 15 MG, BID
     Route: 048
     Dates: start: 20070402, end: 20070406
  18. MS CONTIN [Concomitant]
     Dosage: 15 MG, BID
     Route: 048
     Dates: start: 20070402, end: 20070406
  19. AVELOX [Concomitant]
     Indication: PROPHYLAXIS
     Dosage: 400 MG, QD
     Route: 042
     Dates: start: 20070405, end: 20070406
  20. BOWEL PREP NOS [Concomitant]
     Indication: CONSTIPATION
     Dosage: UNK, SINGLE
     Route: 048
     Dates: start: 20070402, end: 20070403
  21. LORTAB [Concomitant]
     Indication: BONE PAIN
     Dosage: UNK, PRN
     Route: 048
     Dates: start: 20070402, end: 20070406
  22. DILAUDID [Concomitant]
     Indication: PAIN
     Dosage: 4 MG, PRN
     Route: 048
     Dates: start: 20070326, end: 20070402

REACTIONS (2)
  - CARDIOPULMONARY FAILURE [None]
  - RESTRICTIVE CARDIOMYOPATHY [None]
